FAERS Safety Report 4822910-3 (Version None)
Quarter: 2005Q4

REPORT INFORMATION
  Report Type: 
  Country: None (occurrence: None)
  Receive Date: 20051104
  Receipt Date: 20051020
  Transmission Date: 20060501
  Serious: Yes (Death, Hospitalization, Other)
  Sender: FDA-Public Use
  Company Number: M03-341-066

PATIENT
  Age: 53 Year
  Sex: Male
  Weight: 81 kg

DRUGS (6)
  1. VELCADE [Suspect]
     Indication: MULTIPLE MYELOMA
     Dosage: 1.30 MG/M2, INTRAVENOUS
     Route: 042
     Dates: start: 20030708, end: 20030807
  2. PROCRIT [Concomitant]
  3. PREDNISONE [Concomitant]
  4. MAGNESIUM [Concomitant]
  5. POTASSIUM [Concomitant]
  6. PRILOSEC [Concomitant]

REACTIONS (35)
  - ACTIVATED PARTIAL THROMBOPLASTIN TIME PROLONGED [None]
  - ALANINE AMINOTRANSFERASE INCREASED [None]
  - ANAEMIA OF CHRONIC DISEASE [None]
  - ASPARTATE AMINOTRANSFERASE INCREASED [None]
  - ASTHENIA [None]
  - BLOOD BILIRUBIN INCREASED [None]
  - BLOOD GLUCOSE INCREASED [None]
  - BLOOD SODIUM DECREASED [None]
  - BODY TEMPERATURE DECREASED [None]
  - CARDIAC TAMPONADE [None]
  - DEHYDRATION [None]
  - DISEASE PROGRESSION [None]
  - GALLBLADDER DISORDER [None]
  - GALLBLADDER POLYP [None]
  - GASTROINTESTINAL HAEMORRHAGE [None]
  - HEADACHE [None]
  - HEPATIC ENZYME INCREASED [None]
  - HYPERCOAGULATION [None]
  - HYPOMAGNESAEMIA [None]
  - INTERNATIONAL NORMALISED RATIO INCREASED [None]
  - MULTIPLE MYELOMA [None]
  - NAUSEA [None]
  - PALLOR [None]
  - PANCYTOPENIA [None]
  - PERICARDITIS [None]
  - PROTEIN TOTAL INCREASED [None]
  - PROTHROMBIN TIME PROLONGED [None]
  - PULMONARY OEDEMA [None]
  - PURPURA [None]
  - RASH [None]
  - RENAL FAILURE [None]
  - SKIN LESION [None]
  - ULTRASOUND LIVER ABNORMAL [None]
  - VASCULITIS [None]
  - VOMITING [None]
